FAERS Safety Report 13272610 (Version 1)
Quarter: 2017Q1

REPORT INFORMATION
  Report Type: Spontaneous
  Country: US (occurrence: US)
  Receive Date: 20170226
  Receipt Date: 20170226
  Transmission Date: 20170428
  Serious: Yes (Other)
  Sender: FDA-Public Use
  Company Number: None

PATIENT
  Age: 52 Year
  Sex: Male
  Weight: 92.25 kg

DRUGS (1)
  1. BUPRENORPHINE 8MG/NALOXONE 2MG [Suspect]
     Active Substance: BUPRENORPHINE\NALOXONE
     Indication: PAIN
     Dosage: ?          QUANTITY:1 TABLET(S);?
     Route: 060

REACTIONS (3)
  - Peripheral swelling [None]
  - Pain [None]
  - Oedema peripheral [None]

NARRATIVE: CASE EVENT DATE: 20170201
